FAERS Safety Report 10026716 (Version 1)
Quarter: 2014Q1

REPORT INFORMATION
  Report Type: Report from Study
  Country: US (occurrence: US)
  Receive Date: 20140321
  Receipt Date: 20140321
  Transmission Date: 20141002
  Serious: Yes (Death)
  Sender: FDA-Public Use
  Company Number: US-ROCHE-1362890

PATIENT
  Age: 58 Year
  Sex: Male

DRUGS (1)
  1. XELODA [Suspect]
     Indication: RECTAL CANCER
     Dosage: 1500 MG- 3 PILLS IN THE MORNING, 3 PILLS AT NIGHT
     Route: 048
     Dates: start: 201205, end: 201310

REACTIONS (6)
  - Cardio-respiratory arrest [Fatal]
  - Malignant neoplasm progression [Unknown]
  - Malaise [Unknown]
  - Nausea [Unknown]
  - Stomatitis [Unknown]
  - Pain [Unknown]
